FAERS Safety Report 7953899-6 (Version None)
Quarter: 2011Q4

REPORT INFORMATION
  Report Type: 
  Country: None (occurrence: None)
  Receive Date: 20111202
  Receipt Date: 20111123
  Transmission Date: 20120403
  Serious: Yes (Hospitalization, Other)
  Sender: FDA-Public Use
  Company Number: FR-BRISTOL-MYERS SQUIBB COMPANY-16249120

PATIENT
  Age: 81 Year
  Sex: Male

DRUGS (1)
  1. HYDREA [Suspect]
     Dosage: 1 DF=3 TABS ON ODD DAYS AND 2 TABS ON EVEN DAYS
     Dates: end: 20110625

REACTIONS (4)
  - SKIN ULCER [None]
  - OEDEMA PERIPHERAL [None]
  - ECZEMA [None]
  - GENERAL PHYSICAL HEALTH DETERIORATION [None]
